FAERS Safety Report 7420869-6 (Version None)
Quarter: 2011Q2

REPORT INFORMATION
  Report Type: 
  Country: None (occurrence: None)
  Receive Date: 20110418
  Receipt Date: 20110413
  Transmission Date: 20111010
  Serious: Yes (Death, Hospitalization, Other)
  Sender: FDA-Public Use
  Company Number: PHHY2010MX47919

PATIENT
  Age: 67 Year
  Sex: Male

DRUGS (1)
  1. ACLASTA [Suspect]
     Indication: OSTEOPOROSIS
     Dosage: 5 MG,
     Route: 042
     Dates: start: 20090401

REACTIONS (12)
  - CARDIAC DISORDER [None]
  - FALL [None]
  - APATHY [None]
  - DEPRESSION [None]
  - DECREASED APPETITE [None]
  - HIP FRACTURE [None]
  - ARTERIAL OCCLUSIVE DISEASE [None]
  - LIMB ASYMMETRY [None]
  - ANAEMIA [None]
  - GAIT DISTURBANCE [None]
  - DRUG INEFFECTIVE [None]
  - MYOCARDIAL INFARCTION [None]
